FAERS Safety Report 4934145-4 (Version None)
Quarter: 2006Q1

REPORT INFORMATION
  Report Type: 
  Country: None (occurrence: None)
  Receive Date: 20060307
  Receipt Date: 20060224
  Transmission Date: 20060701
  Serious: Yes (Death, Life-Threatening, Other)
  Sender: FDA-Public Use
  Company Number: JP-JNJFOC-20060103818

PATIENT
  Sex: Male

DRUGS (9)
  1. ITRIZOLE [Suspect]
     Indication: PULMONARY TUBERCULOSIS
     Route: 048
     Dates: start: 20050805, end: 20060117
  2. DIGOXIN [Interacting]
     Indication: ATRIAL FIBRILLATION
     Route: 048
     Dates: start: 20050614, end: 20060117
  3. ISOSORBIDE DINITRATE [Concomitant]
     Indication: ATRIAL FIBRILLATION
     Route: 065
     Dates: start: 19960101
  4. FUDOSTEINE [Concomitant]
     Indication: ATRIAL FIBRILLATION
     Route: 048
     Dates: start: 20050714
  5. DISOPYRAMIDE [Concomitant]
     Indication: ATRIAL FIBRILLATION
     Route: 048
     Dates: start: 20050606
  6. TPN [Concomitant]
     Route: 048
     Dates: start: 20050607
  7. TPN [Concomitant]
     Route: 048
     Dates: start: 20050607
  8. TPN [Concomitant]
     Route: 048
     Dates: start: 20050607
  9. TPN [Concomitant]
     Indication: ATRIAL FIBRILLATION
     Route: 048
     Dates: start: 20050607

REACTIONS (6)
  - ARRHYTHMIA [None]
  - ATRIAL FIBRILLATION [None]
  - CARDIAC FAILURE [None]
  - DRUG INTERACTION [None]
  - EXTRASYSTOLES [None]
  - VENTRICULAR TACHYCARDIA [None]
